FAERS Safety Report 16700825 (Version 1)
Quarter: 2019Q3

REPORT INFORMATION
  Report Type: Spontaneous
  Country: US (occurrence: US)
  Receive Date: 20190814
  Receipt Date: 20190814
  Transmission Date: 20191004
  Serious: Yes (Other)
  Sender: FDA-Public Use
  Company Number: US-SCIEGEN PHARMACEUTICALS INC-2019SCILIT00238

PATIENT
  Age: 80 Year
  Sex: Male

DRUGS (1)
  1. RANOLAZINE EXTENDED-RELEASE TABLETS [Suspect]
     Active Substance: RANOLAZINE

REACTIONS (1)
  - Brugada syndrome [Recovered/Resolved]
